FAERS Safety Report 23476082 (Version 1)
Quarter: 2024Q1

REPORT INFORMATION
  Report Type: Report from Study
  Country: US (occurrence: US)
  Receive Date: 20240204
  Receipt Date: 20240204
  Transmission Date: 20240410
  Serious: No
  Sender: FDA-Public Use
  Company Number: US-EXELIXIS-CABO-23062221

PATIENT
  Sex: Female

DRUGS (1)
  1. CABOMETYX [Suspect]
     Active Substance: CABOZANTINIB S-MALATE
     Indication: Renal cancer
     Dosage: 40 MG, QD
     Route: 048

REACTIONS (8)
  - Polydipsia [Unknown]
  - Back pain [Unknown]
  - Fatigue [Unknown]
  - Blood pressure increased [Unknown]
  - Dry skin [Unknown]
  - Taste disorder [Unknown]
  - Weight decreased [Unknown]
  - Stomatitis [Unknown]
